FAERS Safety Report 10596456 (Version 2)
Quarter: 2015Q2

REPORT INFORMATION
  Report Type: Report from Study
  Country: US (occurrence: US)
  Receive Date: 20141120
  Receipt Date: 20150529
  Transmission Date: 20150821
  Serious: Yes (Other)
  Sender: FDA-Public Use
  Company Number: US-GILEAD-2014-0123603

PATIENT
  Age: 70 Year
  Sex: Female

DRUGS (7)
  1. AMBRISENTAN [Suspect]
     Active Substance: AMBRISENTAN
     Indication: PULMONARY HYPERTENSION
     Dosage: 10 MG, QD
     Route: 065
     Dates: start: 20120404
  2. AMBRISENTAN [Suspect]
     Active Substance: AMBRISENTAN
     Indication: ARTERIOSCLEROSIS CORONARY ARTERY
  3. AMBRISENTAN [Suspect]
     Active Substance: AMBRISENTAN
     Indication: OBSTRUCTIVE AIRWAYS DISORDER
  4. AMBRISENTAN [Suspect]
     Active Substance: AMBRISENTAN
     Indication: HYPERTENSION
  5. AMBRISENTAN [Suspect]
     Active Substance: AMBRISENTAN
     Indication: COR PULMONALE CHRONIC
  6. AMBRISENTAN [Suspect]
     Active Substance: AMBRISENTAN
     Indication: EX-TOBACCO USER
  7. AMBRISENTAN [Suspect]
     Active Substance: AMBRISENTAN
     Indication: CHRONIC RESPIRATORY FAILURE

REACTIONS (3)
  - Insomnia [Unknown]
  - Weight increased [Unknown]
  - Pulmonary arterial hypertension [Unknown]
